FAERS Safety Report 9655586 (Version 1)
Quarter: 2013Q4

REPORT INFORMATION
  Report Type: Spontaneous
  Country: US (occurrence: US)
  Receive Date: 20131030
  Receipt Date: 20131030
  Transmission Date: 20140711
  Serious: Yes (Other)
  Sender: FDA-Public Use
  Company Number: US-JNJFOC-20131011411

PATIENT
  Age: 50 Year
  Sex: Male
  Weight: 70.31 kg

DRUGS (4)
  1. BENADRYL ALLERGY ULTRATAB [Suspect]
     Indication: RESTLESSNESS
     Dosage: 1/4 TABLET
     Route: 048
  2. LATUDA [Suspect]
     Indication: PSYCHOTIC DISORDER
     Route: 065
  3. ZOLOFT [Concomitant]
     Indication: ANXIETY
     Route: 065
     Dates: start: 20131014
  4. ZOLOFT [Concomitant]
     Indication: ANTIDEPRESSANT THERAPY
     Route: 065
     Dates: start: 20131014

REACTIONS (2)
  - Tremor [Not Recovered/Not Resolved]
  - Off label use [Unknown]
